FAERS Safety Report 7125364-X (Version None)
Quarter: 2010Q4

REPORT INFORMATION
  Report Type: 
  Country: None (occurrence: None)
  Receive Date: 20101129
  Receipt Date: 20101118
  Transmission Date: 20110411
  Serious: Yes (Other)
  Sender: FDA-Public Use
  Company Number: US-ROCHE-722588

PATIENT
  Sex: Male
  Weight: 81.6 kg

DRUGS (3)
  1. ACCUTANE [Suspect]
     Indication: ACNE
     Dosage: START DATE: SUMMER 2001
     Route: 065
     Dates: start: 20010101
  2. ACCUTANE [Suspect]
     Route: 065
     Dates: start: 20010522, end: 20011201
  3. ACCUTANE [Suspect]
     Route: 065
     Dates: start: 20051201

REACTIONS (4)
  - ANAL FISSURE [None]
  - COLITIS ULCERATIVE [None]
  - GASTROINTESTINAL INJURY [None]
  - INFLAMMATORY BOWEL DISEASE [None]
